FAERS Safety Report 18931682 (Version 1)
Quarter: 2021Q1

REPORT INFORMATION
  Report Type: Spontaneous
  Country: US (occurrence: US)
  Receive Date: 20210223
  Receipt Date: 20210223
  Transmission Date: 20210420
  Serious: No
  Sender: FDA-Public Use
  Company Number: US-IGSA-BIG0010592

PATIENT
  Age: 56 Year
  Sex: Female
  Weight: 68 kg

DRUGS (12)
  1. PROVENTIL [Concomitant]
     Active Substance: ALBUTEROL
  2. APRISO [Concomitant]
     Active Substance: MESALAMINE
  3. MUCINEX [Concomitant]
     Active Substance: GUAIFENESIN
  4. BUSPIRONE [Concomitant]
     Active Substance: BUSPIRONE HYDROCHLORIDE
  5. CHANTIX [Concomitant]
     Active Substance: VARENICLINE TARTRATE
  6. TRELEGY ELLIPTA [Concomitant]
     Active Substance: FLUTICASONE FUROATE\UMECLIDINIUM BROMIDE\VILANTEROL TRIFENATATE
  7. PAROXETINE. [Concomitant]
     Active Substance: PAROXETINE
  8. FLONASE                            /00908302/ [Concomitant]
     Active Substance: MOMETASONE FUROATE
  9. PROLASTIN?C LIQUID [Suspect]
     Active Substance: .ALPHA.1-PROTEINASE INHIBITOR HUMAN
     Indication: ALPHA-1 ANTITRYPSIN DEFICIENCY
     Dosage: 4080 MILLIGRAM, Q.WK.
     Route: 042
     Dates: start: 20200326
  10. VENTOLIN [Concomitant]
     Active Substance: ALBUTEROL SULFATE
  11. AMLODIPINE [Concomitant]
     Active Substance: AMLODIPINE BESYLATE
  12. VITAMIN B6 [Concomitant]
     Active Substance: PYRIDOXINE HYDROCHLORIDE

REACTIONS (2)
  - Pruritus [Not Recovered/Not Resolved]
  - Rash [Not Recovered/Not Resolved]

NARRATIVE: CASE EVENT DATE: 202005
